FAERS Safety Report 7609329-7 (Version None)
Quarter: 2011Q3

REPORT INFORMATION
  Report Type: 
  Country: None (occurrence: None)
  Receive Date: 20110714
  Receipt Date: 20110704
  Transmission Date: 20111222
  Serious: Yes (Other)
  Sender: FDA-Public Use
  Company Number: PHHY2011DE59407

PATIENT
  Age: 64 Year
  Sex: Male

DRUGS (4)
  1. ZOLEDRONIC [Suspect]
     Dosage: UNK
     Route: 042
     Dates: start: 20060203, end: 20060403
  2. CORTISONE ACETATE [Concomitant]
  3. PAMIDRONATE DISODIUM [Suspect]
     Indication: MULTIPLE MYELOMA
     Dosage: UNK
     Route: 042
     Dates: start: 20060403, end: 20080603
  4. CHEMOTHERAPEUTICS [Concomitant]

REACTIONS (1)
  - OSTEONECROSIS OF JAW [None]
